FAERS Safety Report 5726695-8 (Version None)
Quarter: 2008Q2

REPORT INFORMATION
  Report Type: 
  Country: None (occurrence: None)
  Receive Date: 20080502
  Receipt Date: 20080421
  Transmission Date: 20081010
  Serious: Yes (Other)
  Sender: FDA-Public Use
  Company Number: DE-PFIZER INC-2008035678

PATIENT
  Sex: Female

DRUGS (1)
  1. TAFIL [Suspect]
     Indication: MAJOR DEPRESSION
     Dosage: DAILY DOSE:1MG
     Route: 048

REACTIONS (2)
  - MICROANGIOPATHY [None]
  - POLYNEUROPATHY [None]
